FAERS Safety Report 8900915 (Version 1)
Quarter: 2012Q4

REPORT INFORMATION
  Report Type: 
  Country: US (occurrence: US)
  Receive Date: 20121109
  Receipt Date: 20121109
  Transmission Date: 20130627
  Serious: Yes (Hospitalization, Other)
  Sender: FDA-Public Use
  Company Number: US-MPIJNJ-2012-07849

PATIENT
  Age: 70 Year
  Sex: Male
  Weight: 110 kg

DRUGS (1)
  1. VELCADE [Suspect]
     Indication: DIFFUSE LARGE B-CELL LYMPHOMA
     Dosage: UNK
     Dates: start: 20100601, end: 20120720

REACTIONS (7)
  - Troponin increased [Unknown]
  - Hyperuricaemia [Not Recovered/Not Resolved]
  - Blood bilirubin increased [Unknown]
  - Pleural effusion [Not Recovered/Not Resolved]
  - Oedema peripheral [Unknown]
  - Rectal haemorrhage [Unknown]
  - Disease progression [Unknown]
